FAERS Safety Report 18849400 (Version 1)
Quarter: 2021Q1

REPORT INFORMATION
  Report Type: Spontaneous
  Country: FR (occurrence: FR)
  Receive Date: 20210205
  Receipt Date: 20210205
  Transmission Date: 20210419
  Serious: Yes (Other)
  Sender: FDA-Public Use
  Company Number: FR-SUN PHARMACEUTICAL INDUSTRIES LTD-2021RR-279275

PATIENT
  Age: 44 Year
  Sex: Male

DRUGS (4)
  1. HEROIN [Suspect]
     Active Substance: DIAMORPHINE
     Indication: PRODUCT USED FOR UNKNOWN INDICATION
     Dosage: 1G/JOUR ANNONC?S ()
     Route: 042
     Dates: start: 2020
  2. TRAMADOL. [Suspect]
     Active Substance: TRAMADOL
     Indication: PRODUCT USED FOR UNKNOWN INDICATION
     Dosage: 800 ? 1000 MG/JOUR ANNONC?S ()
     Route: 065
  3. COCAINE [Suspect]
     Active Substance: COCAINE
     Indication: PRODUCT USED FOR UNKNOWN INDICATION
     Dosage: 1G/JOUR ANNONC?S ()
     Route: 042
     Dates: start: 2020
  4. METHADONE [Suspect]
     Active Substance: METHADONE HYDROCHLORIDE
     Indication: PRODUCT USED FOR UNKNOWN INDICATION
     Dosage: 40 MG/JOUR ANNONC?S ()
     Route: 065

REACTIONS (1)
  - Drug dependence [Recovering/Resolving]

NARRATIVE: CASE EVENT DATE: 202101
